FAERS Safety Report 4979872-8 (Version None)
Quarter: 2006Q2

REPORT INFORMATION
  Report Type: 
  Country: None (occurrence: None)
  Receive Date: 20060421
  Receipt Date: 20060414
  Transmission Date: 20061013
  Serious: Yes (Hospitalization)
  Sender: FDA-Public Use
  Company Number: US-MERCK-0604USA02846

PATIENT
  Age: 86 Year
  Sex: Female
  Weight: 89 kg

DRUGS (9)
  1. VIOXX [Suspect]
     Indication: ARTHRITIS
     Route: 048
     Dates: start: 20030801, end: 20040901
  2. COZAAR [Concomitant]
     Route: 065
  3. FOLIC ACID [Concomitant]
     Route: 065
  4. SYNTHROID [Concomitant]
     Route: 065
  5. XALATAN [Concomitant]
     Route: 065
  6. FERROUS SULFATE [Concomitant]
     Route: 065
  7. ASPIRIN [Concomitant]
     Route: 065
  8. PROTONIX [Concomitant]
     Route: 065
  9. WARFARIN SODIUM [Concomitant]
     Route: 065

REACTIONS (1)
  - MYOCARDIAL INFARCTION [None]
